FAERS Safety Report 21663919 (Version 2)
Quarter: 2022Q4

REPORT INFORMATION
  Report Type: Spontaneous
  Country: US (occurrence: US)
  Receive Date: 20221130
  Receipt Date: 20221212
  Transmission Date: 20230113
  Serious: No
  Sender: FDA-Public Use
  Company Number: US-RECORDATI-2022005490

PATIENT
  Age: 74 Year
  Sex: Female
  Weight: 42 kg

DRUGS (23)
  1. ISTURISA [Suspect]
     Active Substance: OSILODROSTAT PHOSPHATE
     Indication: Pituitary-dependent Cushing^s syndrome
     Dosage: 0.5 MG, QD (IN THE EVENING)
     Route: 048
     Dates: start: 20221011, end: 202210
  2. ISTURISA [Suspect]
     Active Substance: OSILODROSTAT PHOSPHATE
     Dosage: 1.5 MG, QD (0.5MG IN THE MORNING AND 1MG IN THE EVENING)
     Route: 048
     Dates: start: 20221026, end: 2022
  3. ISTURISA [Suspect]
     Active Substance: OSILODROSTAT PHOSPHATE
     Dosage: 1 MG, BID (2 MG QD, 1 MG IN THE MORNING, 1 MG AT NIGHT)
     Route: 048
     Dates: start: 2022
  4. ISTURISA [Suspect]
     Active Substance: OSILODROSTAT PHOSPHATE
     Dosage: 2 MG, QD (1 MILLIGRAM, BID (1 MG IN THE MORNING, 1 MG AT NIGHT) NOT STARTED YET)
     Route: 048
     Dates: start: 20221103
  5. CARVEDILOL [Suspect]
     Active Substance: CARVEDILOL
     Indication: Hypertension
     Dosage: 3.125 MG, BID (1.56 MG TO 3.125 MG BID)
     Route: 048
  6. AMILORIDE [Suspect]
     Active Substance: AMILORIDE
     Indication: Hypertension
     Dosage: 7.5 MG, QD
     Route: 048
  7. AMILORIDE [Suspect]
     Active Substance: AMILORIDE
     Dosage: 7.5 MG, QD
     Route: 065
  8. AMILORIDE [Suspect]
     Active Substance: AMILORIDE
     Dosage: 7.5 MG, QD
     Route: 065
  9. HYDRALAZINE [Suspect]
     Active Substance: HYDRALAZINE HYDROCHLORIDE
     Indication: Hypertension
     Dosage: 12.5 MG, QD PRN
     Route: 048
  10. HYDRALAZINE [Suspect]
     Active Substance: HYDRALAZINE HYDROCHLORIDE
     Dosage: 12.5 MG, QD (PRN)
     Route: 065
  11. HYDRALAZINE [Suspect]
     Active Substance: HYDRALAZINE HYDROCHLORIDE
     Dosage: 12.5 MG, QD (PRN)
     Route: 065
  12. ARGININE [Concomitant]
     Active Substance: ARGININE
     Indication: Anaemia
     Dosage: 500 MG, PRN (FORMULATION: POWDER)
     Route: 048
  13. LOPERAMIDE [Concomitant]
     Active Substance: LOPERAMIDE
     Indication: Diarrhoea
     Dosage: 2 MG, PRN
     Route: 065
  14. LORAZEPAM [Concomitant]
     Active Substance: LORAZEPAM
     Indication: Anxiety
     Dosage: 1 MG, PRN
     Route: 048
  15. MELATONIN [Concomitant]
     Active Substance: MELATONIN
     Indication: Insomnia
     Dosage: 1 MG, QD (BEDTIME)
     Route: 048
  16. OMEGA 3 [Concomitant]
     Active Substance: CAPSAICIN
     Indication: Blood cholesterol increased
     Dosage: 1000 MG, QD
     Route: 048
  17. OPIUM [Concomitant]
     Active Substance: OPIUM
     Indication: Diarrhoea
     Dosage: 10 MILLIGRAM PER MILLILITRE, PRN
     Route: 048
  18. PEPPERMINT OIL [Concomitant]
     Active Substance: PEPPERMINT OIL
     Indication: Irritable bowel syndrome
     Dosage: 1 DOSAGE FORM, QD
     Route: 065
  19. PEPTO-BISMOL [Concomitant]
     Active Substance: BISMUTH SUBSALICYLATE
     Indication: Diarrhoea
     Dosage: 260 MILLIGRAM, PRN (CHEWABLE PREPARATION)
     Route: 048
  20. PEPTO-BISMOL [Concomitant]
     Active Substance: BISMUTH SUBSALICYLATE
     Indication: Abdominal discomfort
  21. QUESTRAN [Concomitant]
     Active Substance: CHOLESTYRAMINE
     Indication: Diarrhoea
     Dosage: 4 GRAM, QD
     Route: 065
  22. VITAMIN B COMPLEX [Concomitant]
     Active Substance: CYANOCOBALAMIN\DEXPANTHENOL\NIACINAMIDE\PYRIDOXINE HYDROCHLORIDE\RIBOFLAVIN 5^-PHOSPHATE SODIUM\THIA
     Indication: Hypovitaminosis
     Dosage: UNK, QD
     Route: 048
  23. VITAMIN B COMPLEX [Concomitant]
     Active Substance: CYANOCOBALAMIN\DEXPANTHENOL\NIACINAMIDE\PYRIDOXINE HYDROCHLORIDE\RIBOFLAVIN 5^-PHOSPHATE SODIUM\THIA
     Dosage: UNK, QD
     Route: 065

REACTIONS (18)
  - Blood sodium decreased [Unknown]
  - Feeling abnormal [Not Recovered/Not Resolved]
  - Blood creatinine decreased [Unknown]
  - Nasopharyngitis [Not Recovered/Not Resolved]
  - Urinary tract infection [Not Recovered/Not Resolved]
  - Nausea [Not Recovered/Not Resolved]
  - Headache [Not Recovered/Not Resolved]
  - Blood pressure increased [Not Recovered/Not Resolved]
  - Depression [Unknown]
  - Fatigue [Not Recovered/Not Resolved]
  - Visual impairment [Not Recovered/Not Resolved]
  - Ear infection [Not Recovered/Not Resolved]
  - Paraesthesia [Not Recovered/Not Resolved]
  - Asthenia [Not Recovered/Not Resolved]
  - Dizziness [Not Recovered/Not Resolved]
  - Wrong technique in product usage process [Recovered/Resolved]
  - Off label use [Recovered/Resolved]
  - Off label use [Recovered/Resolved]

NARRATIVE: CASE EVENT DATE: 20220101
